FAERS Safety Report 5195981-5 (Version None)
Quarter: 2006Q4

REPORT INFORMATION
  Report Type: 
  Country: None (occurrence: None)
  Receive Date: 20061227
  Receipt Date: 20061227
  Transmission Date: 20070319
  Serious: Yes (Hospitalization)
  Sender: FDA-Public Use
  Company Number: None

PATIENT
  Age: 31 Year
  Sex: Male
  Weight: 71 kg

DRUGS (2)
  1. TRUVADA [Suspect]
     Indication: HIV TEST
     Dosage: ONE TABLET EVERY DAY PO
     Route: 048
  2. FOSCARNET [Suspect]
     Indication: CYTOMEGALOVIRUS CHORIORETINITIS
     Dosage: 90 MG/KG EVERY 12 HOURS IV
     Route: 042
     Dates: start: 20061019, end: 20061024

REACTIONS (2)
  - DEHYDRATION [None]
  - RENAL FAILURE ACUTE [None]
